FAERS Safety Report 23900069 (Version 1)
Quarter: 2024Q2

REPORT INFORMATION
  Report Type: Report from Study
  Country: CA (occurrence: CA)
  Receive Date: 20240526
  Receipt Date: 20240526
  Transmission Date: 20240716
  Serious: Yes (Other)
  Sender: FDA-Public Use
  Company Number: CA-ABBVIE-5763988

PATIENT
  Sex: Female

DRUGS (4)
  1. SKYRIZI [Suspect]
     Active Substance: RISANKIZUMAB-RZAA
     Indication: Crohn^s disease
     Dosage: AT WEEK 12 AND EVERY 8 WEEKS AFTER
     Route: 058
     Dates: start: 20231212, end: 2024
  2. SKYRIZI [Suspect]
     Active Substance: RISANKIZUMAB-RZAA
     Dosage: DRUG END DATE 2023
     Route: 058
     Dates: start: 20230312
  3. SKYRIZI [Suspect]
     Active Substance: RISANKIZUMAB-RZAA
     Route: 058
     Dates: start: 2024
  4. DEPO-PROVERA [Concomitant]
     Active Substance: MEDROXYPROGESTERONE ACETATE
     Indication: Product used for unknown indication
     Dates: end: 2024

REACTIONS (2)
  - Thrombosis [Unknown]
  - Rash [Not Recovered/Not Resolved]

NARRATIVE: CASE EVENT DATE: 20240507
